FAERS Safety Report 4289566-2 (Version None)
Quarter: 2004Q1

REPORT INFORMATION
  Report Type: 
  Country: None (occurrence: None)
  Receive Date: 20040126
  Receipt Date: 20030929
  Transmission Date: 20041129
  Serious: No
  Sender: FDA-Public Use
  Company Number: USA030948478

PATIENT
  Age: 56 Year
  Sex: Female

DRUGS (3)
  1. FORTEO [Suspect]
     Indication: PITUITARY TUMOUR
     Dates: start: 20030801
  2. DECADRON [Concomitant]
  3. CORTEP (HYDROCORTISONE ACETATE) [Concomitant]

REACTIONS (2)
  - HOARSENESS [None]
  - MUSCLE CRAMP [None]
